FAERS Safety Report 16742859 (Version 1)
Quarter: 2019Q3

REPORT INFORMATION
  Report Type: Spontaneous
  Country: SE (occurrence: SE)
  Receive Date: 20190827
  Receipt Date: 20190827
  Transmission Date: 20191005
  Serious: Yes (Disabling)
  Sender: FDA-Public Use
  Company Number: SE-AMGEN-SWESP2019133656

PATIENT
  Age: 73 Year
  Sex: Female

DRUGS (12)
  1. SOOLANTRA [Concomitant]
     Active Substance: IVERMECTIN
     Dosage: 1 UNK, QD
  2. LEPHETON [Concomitant]
     Active Substance: EPHEDRINE\ETHYLMORPHINE
     Dosage: 3 UNK, AS NECESSARY
  3. DOXYCYCLINE. [Concomitant]
     Active Substance: DOXYCYCLINE
     Dosage: 1 UNK, QD
  4. MOLLIPECT [BROMHEXINE HYDROCHLORIDE;EPHEDRINE HYDROCHLORIDE;ETHANOL;PO [Concomitant]
     Dosage: 3 UNK, AS NECESSARY
  5. PROLIA [Suspect]
     Active Substance: DENOSUMAB
     Indication: OSTEOPOROSIS
     Dosage: 60 MILLIGRAM, Q6MO
     Route: 058
     Dates: start: 20181114
  6. IBUPROFEN. [Concomitant]
     Active Substance: IBUPROFEN
     Dosage: 1 UNK, AS NECESSARY
  7. PARACETAMOL [Concomitant]
     Active Substance: ACETAMINOPHEN
     Dosage: 3 UNK, AS NECESSARY
  8. SERTRALINE [Concomitant]
     Active Substance: SERTRALINE HYDROCHLORIDE
     Dosage: 1 UNK, QD
  9. KALCIPOS D [Concomitant]
     Active Substance: CALCIUM CARBONATE\CHOLECALCIFEROL
     Dosage: 1 UNK, QD
  10. BEHEPAN [CYANOCOBALAMIN] [Concomitant]
     Active Substance: CYANOCOBALAMIN
     Dosage: 1 UNK, QD
  11. VENTOLINE ROTACAPS [Concomitant]
     Dosage: 1 UNK, AS NECESSARY
  12. ENTOCORT [Concomitant]
     Active Substance: BUDESONIDE
     Dosage: 1 UNK, QD
     Dates: start: 20160420

REACTIONS (1)
  - Muscular weakness [Not Recovered/Not Resolved]

NARRATIVE: CASE EVENT DATE: 201906
